FAERS Safety Report 4330222-X (Version None)
Quarter: 2004Q1

REPORT INFORMATION
  Report Type: 
  Country: None (occurrence: None)
  Receive Date: 20040329
  Receipt Date: 20040318
  Transmission Date: 20041129
  Serious: Yes (Life-Threatening, Hospitalization)
  Sender: FDA-Public Use
  Company Number: 04P-087-0249745-00

PATIENT
  Age: 18 Year
  Sex: Female

DRUGS (8)
  1. VASOLAN           (ISOPTIN)      (VERAPAMIL) [Suspect]
     Indication: HYPERTROPHIC CARDIOMYOPATHY
     Dosage: 240 MG 1 IN 1 D PER ORAL
     Route: 048
     Dates: start: 19980525
  2. BROMAZEPAM [Suspect]
     Indication: ANXIETY DISORDER
     Dosage: 6 MG, 1 IN 1 D, PER ORAL
     Route: 048
     Dates: start: 20030729
  3. AMEZINIUM METISULFATE [Concomitant]
  4. BISOPROLOL FUMARATE [Concomitant]
  5. PROPRANOLOL HYDROCHLORIDE [Concomitant]
  6. CETIRIZINE HCL [Concomitant]
  7. FLUVOXAMINE MALEATE [Concomitant]
  8. ETHYL LOFLAZEPATE [Concomitant]

REACTIONS (9)
  - COMPULSIONS [None]
  - DEPRESSED LEVEL OF CONSCIOUSNESS [None]
  - DIALYSIS [None]
  - DIZZINESS [None]
  - GASTRIC LAVAGE [None]
  - HYPOTENSION [None]
  - MULTIPLE DRUG OVERDOSE [None]
  - PO2 DECREASED [None]
  - SOMNOLENCE [None]
